FAERS Safety Report 8238864-6 (Version None)
Quarter: 2012Q1

REPORT INFORMATION
  Report Type: 
  Country: None (occurrence: None)
  Receive Date: 20120327
  Receipt Date: 20120315
  Transmission Date: 20120608
  Serious: Yes (Death)
  Sender: FDA-Public Use
  Company Number: US-MYLANLABS-2010S1001663

PATIENT
  Age: 33 Year
  Sex: Female
  Weight: 90.27 kg

DRUGS (6)
  1. FENTANYL-100 [Suspect]
     Indication: PAIN
     Route: 062
     Dates: end: 20090114
  2. TRAMADOL HCL [Concomitant]
     Indication: PAIN
     Route: 048
  3. MORPHINE [Suspect]
     Indication: BREAKTHROUGH PAIN
     Dosage: AND PRN
     Route: 048
  4. ALBUTEROL [Concomitant]
     Route: 055
  5. LYRICA [Concomitant]
  6. FENTANYL-100 [Suspect]
     Indication: ENDOMETRIOSIS
     Route: 062
     Dates: end: 20090114

REACTIONS (2)
  - DRUG INTERACTION [None]
  - TOXICITY TO VARIOUS AGENTS [None]
